FAERS Safety Report 24718400 (Version 2)
Quarter: 2024Q4

REPORT INFORMATION
  Report Type: Spontaneous
  Country: US (occurrence: US)
  Receive Date: 20241210
  Receipt Date: 20241216
  Transmission Date: 20250114
  Serious: No
  Sender: PFIZER
  Company Number: US-PFIZER INC-202400320876

PATIENT
  Age: 81 Year
  Sex: Female
  Weight: 91.9 kg

DRUGS (1)
  1. AROMASIN [Suspect]
     Active Substance: EXEMESTANE
     Indication: Hormone receptor positive breast cancer
     Dosage: 25 MG, DAILY (TAKE 1 TABLET (25 MG TOTAL) DAILY)
     Route: 048
     Dates: start: 202209

REACTIONS (1)
  - Neoplasm progression [Unknown]

NARRATIVE: CASE EVENT DATE: 20230301
